FAERS Safety Report 9813867 (Version 1)
Quarter: 2014Q1

REPORT INFORMATION
  Report Type: Spontaneous
  Country: US (occurrence: US)
  Receive Date: 20140113
  Receipt Date: 20140113
  Transmission Date: 20141002
  Serious: No
  Sender: FDA-Public Use
  Company Number: US-GILEAD-2010-0034247

PATIENT
  Sex: Female

DRUGS (3)
  1. TRUVADA [Suspect]
     Indication: HIV INFECTION
  2. CYCLOBENZAPRINE [Suspect]
     Indication: MYALGIA
  3. CANNABIS [Concomitant]
     Indication: VOMITING

REACTIONS (9)
  - Pain in extremity [Unknown]
  - Decreased appetite [Unknown]
  - Ocular icterus [Unknown]
  - Pain [Unknown]
  - Blood bilirubin increased [Unknown]
  - Muscular weakness [Unknown]
  - Nausea [Unknown]
  - Dizziness [Unknown]
  - Vomiting [Unknown]
